FAERS Safety Report 11275363 (Version 1)
Quarter: 2015Q2

REPORT INFORMATION
  Report Type: Spontaneous
  Country: US (occurrence: None)
  Receive Date: 20150625
  Receipt Date: 20150625
  Transmission Date: 20150821
  Serious: No
  Sender: FDA-Public Use
  Company Number: A-NJ2015-116510

PATIENT
  Age: 27 Year
  Sex: Female

DRUGS (6)
  1. PLETAL [Concomitant]
     Active Substance: CILOSTAZOL
  2. HYDROCHLOROTHIAZIDE. [Concomitant]
     Active Substance: HYDROCHLOROTHIAZIDE
  3. OPSUMIT [Suspect]
     Active Substance: MACITENTAN
     Indication: PULMONARY HYPERTENSION
     Route: 048
     Dates: start: 20150407
  4. ADCIRCA [Concomitant]
     Active Substance: TADALAFIL
  5. PLAQUENIL [Concomitant]
     Active Substance: HYDROXYCHLOROQUINE SULFATE
  6. PREDNISONE. [Concomitant]
     Active Substance: PREDNISONE

REACTIONS (2)
  - Swelling [None]
  - Urticaria [None]

NARRATIVE: CASE EVENT DATE: 20150413
